FAERS Safety Report 8345030 (Version 4)
Quarter: 2013Q3

REPORT INFORMATION
  Report Type: Report from Study
  Country: IT (occurrence: IT)
  Receive Date: 20120120
  Receipt Date: 20130913
  Transmission Date: 20140515
  Serious: Yes (Hospitalization)
  Sender: FDA-Public Use
  Company Number: IT-JNJFOC-20120104919

PATIENT
  Age: 16 Year
  Sex: Male
  Weight: 69 kg

DRUGS (3)
  1. REMICADE [Suspect]
     Indication: CROHN^S DISEASE
     Route: 042
     Dates: start: 20091013
  2. ANTIBIOTICS [Concomitant]
     Indication: CROHN^S DISEASE
  3. BUDESONIDE [Concomitant]

REACTIONS (1)
  - Crohn^s disease [Recovered/Resolved]
